FAERS Safety Report 6354650-6 (Version None)
Quarter: 2009Q3

REPORT INFORMATION
  Report Type: 
  Country: None (occurrence: None)
  Receive Date: 20090914
  Receipt Date: 20090904
  Transmission Date: 20100115
  Serious: No
  Sender: FDA-Public Use
  Company Number: BR-AVENTIS-200918566GDDC

PATIENT
  Age: 40 Year
  Sex: Female

DRUGS (3)
  1. ARAVA [Suspect]
     Route: 048
     Dates: start: 20080101, end: 20090701
  2. ARTRILASE                          /00500401/ [Suspect]
     Indication: ANTIINFLAMMATORY THERAPY
     Route: 048
  3. PREDNISONE [Suspect]
     Route: 048

REACTIONS (1)
  - DRUG EXPOSURE DURING PREGNANCY [None]
